FAERS Safety Report 6429229-8 (Version None)
Quarter: 2009Q4

REPORT INFORMATION
  Report Type: 
  Country: None (occurrence: None)
  Receive Date: 20091105
  Receipt Date: 20091023
  Transmission Date: 20100525
  Serious: Yes (Other)
  Sender: FDA-Public Use
  Company Number: PHHY2009BR26136

PATIENT
  Sex: Female

DRUGS (5)
  1. FORASEQ [Suspect]
     Indication: BRONCHITIS
     Dosage: 12/ 400 MCG, A CAPSULE OF EACH ACTIVE 2 TIMES DAILY
     Dates: start: 20080101
  2. FORASEQ [Suspect]
     Dosage: 12/ 200 MCG
  3. FORASEQ [Suspect]
     Dosage: 12/ 400 MCG
  4. MODURETIC 5-50 [Concomitant]
     Indication: HYPERTENSION
     Dosage: HALF TABLET DAILY
     Route: 048
  5. COMBIVENT [Concomitant]
     Indication: BRONCHITIS
     Dosage: 20/120 MCG, BID
     Dates: start: 20090401

REACTIONS (8)
  - BRONCHITIS [None]
  - CONDITION AGGRAVATED [None]
  - COUGH [None]
  - DRUG DISPENSING ERROR [None]
  - GROIN PAIN [None]
  - INGUINAL HERNIA [None]
  - INGUINAL HERNIA REPAIR [None]
  - NASOPHARYNGITIS [None]
